FAERS Safety Report 16923198 (Version 2)
Quarter: 2019Q4

REPORT INFORMATION
  Report Type: Spontaneous
  Country: US (occurrence: US)
  Receive Date: 20191016
  Receipt Date: 20191031
  Transmission Date: 20200122
  Serious: Yes (Hospitalization, Other)
  Sender: FDA-Public Use
  Company Number: US-AUROBINDO-AUR-APL-2019-066368

PATIENT
  Age: 59 Year
  Sex: Female

DRUGS (7)
  1. VANCOMYCIN [Suspect]
     Active Substance: VANCOMYCIN
     Dosage: 250 MILLIGRAM, FOUR TIMES/DAY
     Route: 054
  2. METRONIDAZOLE. [Concomitant]
     Active Substance: METRONIDAZOLE
     Indication: CLOSTRIDIUM DIFFICILE COLITIS
     Dosage: UNK
     Route: 042
  3. VORICONAZOLE. [Concomitant]
     Active Substance: VORICONAZOLE
     Indication: ANTIFUNGAL PROPHYLAXIS
     Dosage: UNK
     Route: 065
  4. VANCOMYCIN [Suspect]
     Active Substance: VANCOMYCIN
     Dosage: 500 MILLIGRAM, FOUR TIMES/DAY
     Route: 048
  5. MEROPENEM. [Concomitant]
     Active Substance: MEROPENEM
     Indication: EVIDENCE BASED TREATMENT
     Dosage: UNK
     Route: 065
  6. VANCOMYCIN [Suspect]
     Active Substance: VANCOMYCIN
     Indication: CLOSTRIDIUM DIFFICILE COLITIS
     Dosage: 500 MILLIGRAM, FOUR TIMES/DAY
     Route: 054
  7. VANCOMYCIN [Suspect]
     Active Substance: VANCOMYCIN
     Indication: CLOSTRIDIUM DIFFICILE COLITIS
     Dosage: UNK
     Route: 042

REACTIONS (11)
  - Cerebral infarction [Recovering/Resolving]
  - Endocarditis [Recovering/Resolving]
  - Staphylococcal infection [Recovering/Resolving]
  - Toxicity to various agents [Recovering/Resolving]
  - Hypoacusis [Recovering/Resolving]
  - Deep vein thrombosis [Recovering/Resolving]
  - Nephropathy toxic [Recovering/Resolving]
  - Drug level increased [Recovering/Resolving]
  - Quadriplegia [Recovering/Resolving]
  - Areflexia [Recovering/Resolving]
  - Gastrointestinal wall thickening [Recovering/Resolving]
